FAERS Safety Report 7983756 (Version 3)
Quarter: 2013Q2

REPORT INFORMATION
  Report Type: Report from Study
  Country: AU (occurrence: AU)
  Receive Date: 20110609
  Receipt Date: 20130620
  Transmission Date: 20140414
  Serious: Yes (Hospitalization)
  Sender: FDA-Public Use
  Company Number: PHHY2011AU47973

PATIENT
  Age: 47 Year
  Sex: Female

DRUGS (1)
  1. EXJADE [Suspect]
     Indication: THALASSAEMIA
     Dosage: 500 MG, UNK
     Route: 048
     Dates: start: 20100817

REACTIONS (5)
  - Cerebrovascular accident [Recovering/Resolving]
  - Headache [Recovering/Resolving]
  - Loss of consciousness [Recovering/Resolving]
  - Rash [Recovered/Resolved]
  - Constipation [Unknown]
